FAERS Safety Report 22187539 (Version 1)
Quarter: 2023Q2

REPORT INFORMATION
  Report Type: Spontaneous
  Country: US (occurrence: US)
  Receive Date: 20230407
  Receipt Date: 20230407
  Transmission Date: 20230722
  Serious: No
  Sender: FDA-Public Use
  Company Number: US-MYLANLABS-2018107712

PATIENT
  Sex: Female

DRUGS (1)
  1. XANAX [Suspect]
     Active Substance: ALPRAZOLAM
     Indication: Palpitations
     Dosage: 1 DOSAGE FORM, TID (TAKE 1 TABLET 3 TIMES DAILY
     Route: 048

REACTIONS (1)
  - Product use in unapproved indication [Unknown]
